FAERS Safety Report 24618592 (Version 1)
Quarter: 2024Q4

REPORT INFORMATION
  Report Type: Spontaneous
  Country: CA (occurrence: CA)
  Receive Date: 20241114
  Receipt Date: 20241114
  Transmission Date: 20250115
  Serious: Yes (Hospitalization)
  Sender: PFIZER
  Company Number: CA-PFIZER INC-202400297795

PATIENT
  Age: 8 Year
  Sex: Male
  Weight: 34 kg

DRUGS (17)
  1. VINCRISTINE SULFATE [Suspect]
     Active Substance: VINCRISTINE SULFATE
     Indication: Acute myeloid leukaemia
     Dosage: 2 MG
  2. ZINECARD [Suspect]
     Active Substance: DEXRAZOXANE HYDROCHLORIDE
     Indication: Acute myeloid leukaemia
     Dosage: 350 MG
     Route: 042
  3. DOXORUBICIN [Suspect]
     Active Substance: DOXORUBICIN
     Indication: Acute myeloid leukaemia
     Dosage: 35 MG
  4. MERCAPTOPURINE [Suspect]
     Active Substance: MERCAPTOPURINE
     Indication: Acute myeloid leukaemia
     Dosage: 50 MG
  5. PEGASPARGASE [Suspect]
     Active Substance: PEGASPARGASE
     Indication: Acute myeloid leukaemia
     Dosage: 2925 IU
     Route: 042
  6. BACITRACIN [Concomitant]
     Active Substance: BACITRACIN
  7. DIPHENHYDRAMINE [Concomitant]
     Active Substance: DIPHENHYDRAMINE
  8. GABAPENTIN [Concomitant]
     Active Substance: GABAPENTIN
  9. GRANISETRON [Concomitant]
     Active Substance: GRANISETRON
  10. LANSOPRAZOLE [Concomitant]
     Active Substance: LANSOPRAZOLE
  11. LORAZEPAM [Concomitant]
     Active Substance: LORAZEPAM
  12. MELATONIN [Concomitant]
     Active Substance: MELATONIN
  13. POLYETHYLENE GLYCOLS [Concomitant]
     Active Substance: POLYETHYLENE GLYCOLS
  14. RIVAROXABAN [Concomitant]
     Active Substance: RIVAROXABAN
  15. SOLIFENACIN [Concomitant]
     Active Substance: SOLIFENACIN
  16. SUCRALFATE [Concomitant]
     Active Substance: SUCRALFATE
  17. SULFAMETHOXAZOLE AND TRIMETHOPRIM [Concomitant]
     Active Substance: SULFAMETHOXAZOLE\TRIMETHOPRIM

REACTIONS (3)
  - Febrile neutropenia [Recovered/Resolved]
  - Viral infection [Recovered/Resolved]
  - Off label use [Unknown]
